FAERS Safety Report 15884614 (Version 2)
Quarter: 2019Q1

REPORT INFORMATION
  Report Type: Spontaneous
  Country: IT (occurrence: IT)
  Receive Date: 20190129
  Receipt Date: 20190201
  Transmission Date: 20190417
  Serious: Yes (Other)
  Sender: FDA-Public Use
  Company Number: IT-PFIZER INC-2019034617

PATIENT
  Age: 6 Year
  Sex: Male

DRUGS (6)
  1. ARA-C [Suspect]
     Active Substance: CYTARABINE
     Dosage: TOTAL: 24 DOSES
     Route: 037
  2. METHOTREXATE SODIUM. [Suspect]
     Active Substance: METHOTREXATE SODIUM
     Dosage: TOTAL: 24 DOSES
     Route: 037
  3. CICLOSPORIN [Suspect]
     Active Substance: CYCLOSPORINE
     Indication: PROPHYLAXIS AGAINST GRAFT VERSUS HOST DISEASE
     Dosage: 1 MG/KG, DAILY
     Route: 042
  4. CYCLOPHOSPHAMIDE. [Suspect]
     Active Substance: CYCLOPHOSPHAMIDE
     Dosage: UNK
  5. VINCRISTINE SULFATE. [Suspect]
     Active Substance: VINCRISTINE SULFATE
     Dosage: UNK
  6. CICLOSPORIN [Suspect]
     Active Substance: CYCLOSPORINE
     Dosage: REINTRODUCED AT 10% OF THE PREVIOUS DOSE WITH SUBSEQUENT INCREASES UNTIL THERAPEUTIC LEVELS
     Route: 042

REACTIONS (11)
  - Drug level increased [Recovered/Resolved]
  - Seizure [Unknown]
  - Toxic encephalopathy [Recovered/Resolved]
  - Demyelination [Unknown]
  - Focal dyscognitive seizures [Not Recovered/Not Resolved]
  - Transplant rejection [Unknown]
  - Hypertension [Unknown]
  - Visual impairment [Unknown]
  - Cerebrosclerosis [Not Recovered/Not Resolved]
  - Graft versus host disease [Recovered/Resolved]
  - Generalised tonic-clonic seizure [Recovered/Resolved]
